FAERS Safety Report 25512480 (Version 1)
Quarter: 2025Q3

REPORT INFORMATION
  Report Type: Report from Study
  Country: CN (occurrence: CN)
  Receive Date: 20250703
  Receipt Date: 20250703
  Transmission Date: 20251020
  Serious: Yes (Other)
  Sender: ELI LILLY AND COMPANY
  Company Number: CN-ELI_LILLY_AND_COMPANY-CN202506025320

PATIENT
  Age: 59 Year
  Sex: Female

DRUGS (2)
  1. RETEVMO [Suspect]
     Active Substance: SELPERCATINIB
     Indication: Lung neoplasm malignant
     Dosage: 80 MG, BID
     Route: 048
     Dates: start: 20250429
  2. AUMOLERTINIB [Concomitant]
     Active Substance: AUMOLERTINIB
     Indication: Product used for unknown indication
     Dosage: 100 MG, DAILY
     Route: 065
     Dates: start: 20250429

REACTIONS (17)
  - Malignant neoplasm progression [Unknown]
  - Myelosuppression [Unknown]
  - Radiation pneumonitis [Unknown]
  - Pneumonia [Unknown]
  - Pseudomonas infection [Unknown]
  - Atelectasis [Unknown]
  - Cholelithiasis [Unknown]
  - Adrenal disorder [Unknown]
  - Anaemia [Unknown]
  - Poor quality sleep [Unknown]
  - Mental disorder [Unknown]
  - Hepatic calcification [Unknown]
  - Abdominal wall oedema [Unknown]
  - Decreased appetite [Unknown]
  - Oedema peripheral [Unknown]
  - Localised oedema [Unknown]
  - Oedema [Unknown]

NARRATIVE: CASE EVENT DATE: 20250101
